FAERS Safety Report 20724737 (Version 3)
Quarter: 2022Q2

REPORT INFORMATION
  Report Type: Report from Study
  Country: CA (occurrence: CA)
  Receive Date: 20220419
  Receipt Date: 20220606
  Transmission Date: 20220721
  Serious: Yes (Other)
  Sender: FDA-Public Use
  Company Number: CA-BAUSCH-BL-2022-008961

PATIENT

DRUGS (7)
  1. CONTRAVE [Suspect]
     Active Substance: BUPROPION HYDROCHLORIDE\NALTREXONE HYDROCHLORIDE
     Indication: Weight control
     Dosage: 90/8MG, 1 TABLET IN MORNING
     Route: 048
     Dates: start: 20220401, end: 20220406
  2. CONTRAVE [Suspect]
     Active Substance: BUPROPION HYDROCHLORIDE\NALTREXONE HYDROCHLORIDE
     Dosage: 90/8MG, 1 TAB IN MORNING, 1 TAB IN EVENING ,08/APR/2022 90/8MG, 1 TABLET IN MORNING
     Route: 048
     Dates: start: 20220408, end: 202204
  3. CONTRAVE [Suspect]
     Active Substance: BUPROPION HYDROCHLORIDE\NALTREXONE HYDROCHLORIDE
     Dosage: 90/8MG
     Route: 048
     Dates: start: 202204, end: 202204
  4. CONTRAVE [Suspect]
     Active Substance: BUPROPION HYDROCHLORIDE\NALTREXONE HYDROCHLORIDE
     Dosage: 90/8MG, 4 TABS/DAY, STOPPED (2 DOSAGE FORMS,1 IN 12 HR)
     Route: 048
     Dates: start: 202204, end: 20220424
  5. WELLBUTRIN [Suspect]
     Active Substance: BUPROPION HYDROCHLORIDE
     Indication: Depression
     Dosage: 300 MG, 1 IN 1 D
     Route: 048
     Dates: start: 2000, end: 20220331
  6. WELLBUTRIN [Suspect]
     Active Substance: BUPROPION HYDROCHLORIDE
     Indication: Anxiety
     Dosage: STOPPED WELLBUTRIN (150 MG/DAY) (150 MG,1 IN 1 D)
     Route: 048
     Dates: start: 20220401, end: 20220422
  7. WELLBUTRIN [Suspect]
     Active Substance: BUPROPION HYDROCHLORIDE
     Dosage: PATIENT NOW BACK UP TO 300MG OF WELLBUTRIN A DAY (300 MG,1 IN 24 HR)
     Route: 048
     Dates: start: 2022

REACTIONS (5)
  - Hallucination [Recovered/Resolved]
  - Chest pain [Recovered/Resolved]
  - Anxiety [Recovered/Resolved]
  - Contraindicated product administered [Unknown]
  - Product dose omission issue [Unknown]

NARRATIVE: CASE EVENT DATE: 20220401
